FAERS Safety Report 4486833-4 (Version None)
Quarter: 2004Q3

REPORT INFORMATION
  Report Type: 
  Country: None (occurrence: None)
  Receive Date: 20040921
  Receipt Date: 20040224
  Transmission Date: 20050211
  Serious: Yes (Hospitalization)
  Sender: FDA-Public Use
  Company Number: 163-20785-04020708

PATIENT
  Age: 62 Year
  Sex: Male

DRUGS (15)
  1. THALOMID [Suspect]
     Indication: MULTIPLE MYELOMA
     Dosage: 100 MG, DAILY, ORAL
     Route: 048
     Dates: start: 20030401
  2. DEXAMETHASONE [Suspect]
     Indication: MULTIPLE MYELOMA
     Dosage: 40 MG, DAILY Q 4 DAYS EVERY 28 DAY, ORAL
     Route: 048
     Dates: start: 20030401
  3. ZOLOFT [Concomitant]
  4. POTASSIUM (POTASSIUM) [Concomitant]
  5. CARAFATE [Concomitant]
  6. FLOMAX [Concomitant]
  7. COUMADIN [Concomitant]
  8. ACYCLOVIR [Concomitant]
  9. FOLATE (FOLATE SODIUM) [Concomitant]
  10. NEXIUM [Concomitant]
  11. DAPSONE [Concomitant]
  12. CALCIUM (CALCIUM) [Concomitant]
  13. DIFLUCAN [Concomitant]
  14. AREDIA [Concomitant]
  15. PROCRIT [Concomitant]

REACTIONS (4)
  - DEAFNESS [None]
  - INFLUENZA [None]
  - PNEUMONIA [None]
  - SINUSITIS [None]
